FAERS Safety Report 8132257-8 (Version None)
Quarter: 2012Q1

REPORT INFORMATION
  Report Type: 
  Country: None (occurrence: None)
  Receive Date: 20120213
  Receipt Date: 20120209
  Transmission Date: 20120608
  Serious: Yes (Hospitalization)
  Sender: FDA-Public Use
  Company Number: JP-BAYER-2012-013765

PATIENT
  Sex: Male

DRUGS (8)
  1. PLAVIX [Concomitant]
     Dosage: DAILY DOSE 75 MG
     Route: 048
  2. CRESTOR [Concomitant]
     Dosage: DAILY DOSE 2.5 MG
     Route: 048
  3. CARVEDILOL [Concomitant]
     Dosage: 2.5 MG, QID
     Route: 048
  4. RABEPRAZOLE SODIUM [Concomitant]
     Dosage: UNK
     Route: 048
     Dates: end: 20111222
  5. LASIX [Concomitant]
     Dosage: UNK
  6. ASPIRIN [Suspect]
     Indication: MYOCARDIAL INFARCTION
     Dosage: 100 MG, QD
     Route: 048
     Dates: start: 20110108
  7. ACECOL [Concomitant]
     Dosage: DAILY DOSE 2 MG
     Route: 048
  8. TAMSULOSIN HCL [Concomitant]
     Dosage: DAILY DOSE .2 MG
     Route: 048

REACTIONS (1)
  - GASTRIC PERFORATION [None]
